FAERS Safety Report 9888021 (Version 2)
Quarter: 2014Q1

REPORT INFORMATION
  Report Type: Report from Study
  Country: IT (occurrence: IT)
  Receive Date: 20140211
  Receipt Date: 20140324
  Transmission Date: 20141002
  Serious: Yes (Hospitalization)
  Sender: FDA-Public Use
  Company Number: IT-TEVA-461927USA

PATIENT
  Age: 76 Year
  Sex: Male

DRUGS (10)
  1. BENDAMUSTINE [Suspect]
     Route: 065
  2. GRANULOCYTE COLONY-STIMULATING FACTOR NOS [Concomitant]
     Route: 065
     Dates: start: 20140112
  3. ERYTHROPOIETIN [Concomitant]
     Route: 065
     Dates: start: 20131220
  4. ZELITREX [Concomitant]
     Route: 065
     Dates: start: 20140107
  5. CHLORHEXIDINE [Concomitant]
     Route: 065
     Dates: start: 20131205
  6. NYSTATIN [Concomitant]
     Route: 065
     Dates: start: 20131205
  7. PANTOPRAZOLO [Concomitant]
     Route: 065
     Dates: start: 20131205
  8. ONDANSETRON [Concomitant]
     Route: 065
     Dates: start: 20131205
  9. DAPSONE [Concomitant]
     Route: 065
     Dates: start: 20140107
  10. LATTULOSIO [Concomitant]
     Route: 065
     Dates: start: 20131205

REACTIONS (2)
  - Anaemia [Recovered/Resolved]
  - Melaena [Recovered/Resolved]
